FAERS Safety Report 7880551-8 (Version None)
Quarter: 2011Q4

REPORT INFORMATION
  Report Type: 
  Country: None (occurrence: None)
  Receive Date: 20111101
  Receipt Date: 20111027
  Transmission Date: 20120403
  Serious: Yes (Other)
  Sender: FDA-Public Use
  Company Number: FR-PFIZER INC-2011157911

PATIENT
  Age: 59 Year
  Sex: Male
  Weight: 84 kg

DRUGS (5)
  1. LYRICA [Suspect]
     Dosage: 300 MG, 2X/DAY
     Dates: start: 20110301
  2. ATACAND [Concomitant]
     Indication: HYPERTENSION
     Dosage: 4 MG, 1X/DAY
     Route: 048
  3. LYRICA [Suspect]
     Indication: EPICONDYLITIS
     Dosage: 75 MG, 2X/DAY
     Dates: start: 20110301
  4. NEXIUM [Concomitant]
     Indication: HIATUS HERNIA
  5. NEXIUM [Concomitant]
     Indication: GASTROOESOPHAGEAL REFLUX DISEASE
     Dosage: 20 MG, 1X/DAY
     Route: 048

REACTIONS (5)
  - CONDITION AGGRAVATED [None]
  - HYPERGLYCAEMIA [None]
  - WEIGHT INCREASED [None]
  - METABOLIC DISORDER [None]
  - OEDEMA PERIPHERAL [None]
